FAERS Safety Report 8422177-3 (Version None)
Quarter: 2012Q2

REPORT INFORMATION
  Report Type: 
  Country: None (occurrence: None)
  Receive Date: 20120608
  Receipt Date: 20120604
  Transmission Date: 20120825
  Serious: Yes (Other)
  Sender: FDA-Public Use
  Company Number: AU-ROCHE-1075499

PATIENT
  Sex: Male
  Weight: 69.8 kg

DRUGS (7)
  1. XOLAIR [Suspect]
     Indication: PRODUCT USED FOR UNKNOWN INDICATION
     Route: 058
     Dates: start: 20111011, end: 20120103
  2. FLUTICASONE PROPIONATE/SALMETEROL [Concomitant]
     Dates: start: 20080101
  3. VENTOLIN [Concomitant]
     Dates: start: 20080101
  4. ACETAMINOPHEN W/ CODEINE [Concomitant]
     Dates: start: 20111220, end: 20120123
  5. NEXIUM [Concomitant]
     Dates: start: 20080101
  6. SPIRIVA [Concomitant]
     Dates: start: 20100101
  7. RHINOCORT [Concomitant]
     Dates: start: 20080101

REACTIONS (3)
  - HEADACHE [None]
  - MUSCLE TIGHTNESS [None]
  - SWELLING [None]
